FAERS Safety Report 15198215 (Version 2)
Quarter: 2018Q3

REPORT INFORMATION
  Report Type: Spontaneous
  Country: IT (occurrence: IT)
  Receive Date: 20180725
  Receipt Date: 20180926
  Transmission Date: 20181010
  Serious: Yes (Other)
  Sender: FDA-Public Use
  Company Number: IT-PFIZER INC-2018289154

PATIENT
  Age: 74 Year
  Sex: Female

DRUGS (7)
  1. RAMIPRIL. [Suspect]
     Active Substance: RAMIPRIL
     Indication: HYPERTENSION
     Dosage: 5 MG, 1X/DAY
     Route: 048
     Dates: start: 20160101, end: 20180619
  2. CATAPRESAN [Interacting]
     Active Substance: CLONIDINE
     Indication: HYPERTENSION
     Dosage: 450 UG, 1X/DAY
     Route: 048
     Dates: start: 20180501, end: 20180619
  3. ASPIRINETTA [Concomitant]
     Active Substance: ASPIRIN
     Dosage: UNK
     Dates: start: 20160101, end: 20180619
  4. DIBASE [Concomitant]
     Active Substance: CHOLECALCIFEROL
     Dosage: UNK
     Dates: start: 20160101, end: 20180619
  5. CARDICOR [Interacting]
     Active Substance: BISOPROLOL
     Indication: HYPERTENSION
     Dosage: 3.75 MG, 1X/DAY
     Route: 048
     Dates: start: 20160101, end: 20180619
  6. CATAPRESAN [Interacting]
     Active Substance: CLONIDINE
     Dosage: UNK
  7. SIMVASTATIN. [Concomitant]
     Active Substance: SIMVASTATIN
     Dosage: UNK
     Dates: start: 20160101, end: 20180619

REACTIONS (5)
  - Pruritus [Recovering/Resolving]
  - Drug ineffective [Recovering/Resolving]
  - Hypertensive crisis [Recovering/Resolving]
  - Skin lesion [Recovering/Resolving]
  - Drug interaction [Unknown]

NARRATIVE: CASE EVENT DATE: 20180619
